FAERS Safety Report 14273256 (Version 1)
Quarter: 2017Q4

REPORT INFORMATION
  Report Type: Spontaneous
  Country: US (occurrence: US)
  Receive Date: 20171211
  Receipt Date: 20171211
  Transmission Date: 20180321
  Serious: Yes (Disabling, Other)
  Sender: FDA-Public Use
  Company Number: US-OTSUKA-2015_008753

PATIENT
  Sex: Female

DRUGS (3)
  1. ABILIFY [Suspect]
     Active Substance: ARIPIPRAZOLE
     Indication: DEPRESSION
     Dosage: 15 MG, QD
     Route: 048
  2. REMICADE [Concomitant]
     Active Substance: INFLIXIMAB
     Indication: PSORIASIS
     Dosage: UNK
     Route: 065
  3. STELARA [Concomitant]
     Active Substance: USTEKINUMAB
     Indication: PSORIASIS
     Dosage: UNK
     Route: 065

REACTIONS (11)
  - Off label use [Unknown]
  - Surgery [Unknown]
  - Weight increased [Unknown]
  - Fatigue [Unknown]
  - Dizziness [Unknown]
  - Knee arthroplasty [Unknown]
  - Calcinosis [Unknown]
  - Underdose [Unknown]
  - Impaired gastric emptying [Unknown]
  - Synovial cyst [Unknown]
  - Wrong technique in product usage process [Unknown]
